FAERS Safety Report 7339051-6 (Version None)
Quarter: 2011Q1

REPORT INFORMATION
  Report Type: 
  Country: None (occurrence: None)
  Receive Date: 20110308
  Receipt Date: 20110223
  Transmission Date: 20110831
  Serious: Yes (Hospitalization)
  Sender: FDA-Public Use
  Company Number: FR-ELI_LILLY_AND_COMPANY-FR201102007212

PATIENT
  Sex: Female

DRUGS (7)
  1. LAMALINE [Concomitant]
     Dosage: UNK, UNK
     Route: 048
     Dates: end: 20090708
  2. STILNOX [Concomitant]
     Route: 048
     Dates: end: 20090708
  3. HEXAQUINE [Concomitant]
     Route: 048
     Dates: end: 20090708
  4. SPIRONOLACTONE [Concomitant]
     Route: 048
     Dates: end: 20090708
  5. ESBERIVEN /00021901/ [Concomitant]
     Dosage: UNK, UNK
     Route: 048
     Dates: end: 20090708
  6. CYMBALTA [Suspect]
     Indication: DEPRESSION
     Route: 048
     Dates: start: 20090706, end: 20090708
  7. BROMAZEPAM [Concomitant]
     Dosage: UNK, UNK
     Route: 048
     Dates: end: 20090708

REACTIONS (3)
  - HYPERCAPNIA [None]
  - ACUTE RESPIRATORY FAILURE [None]
  - CYTOLYTIC HEPATITIS [None]
